FAERS Safety Report 9470370 (Version 1)
Quarter: 2013Q3

REPORT INFORMATION
  Report Type: Spontaneous
  Country: US (occurrence: US)
  Receive Date: 20130822
  Receipt Date: 20130822
  Transmission Date: 20140515
  Serious: No
  Sender: FDA-Public Use
  Company Number: US-SANOFI-AVENTIS-2013SA010063

PATIENT
  Age: 66 Year
  Sex: Female

DRUGS (2)
  1. MULTAQ [Suspect]
     Indication: ATRIAL FIBRILLATION
     Route: 048
     Dates: start: 201011
  2. UNKNOWDRUG [Suspect]
     Route: 065

REACTIONS (5)
  - Urge incontinence [Unknown]
  - Condition aggravated [Unknown]
  - Muscular weakness [Unknown]
  - Neuralgia [Unknown]
  - Fatigue [Unknown]
